FAERS Safety Report 5022397-4 (Version None)
Quarter: 2006Q2

REPORT INFORMATION
  Report Type: 
  Country: None (occurrence: None)
  Receive Date: 20060605
  Receipt Date: 20060519
  Transmission Date: 20061013
  Serious: Yes (Other)
  Sender: FDA-Public Use
  Company Number: 224797

PATIENT
  Age: 48 Year
  Sex: Female

DRUGS (1)
  1. RAPTIVA [Suspect]
     Indication: PSORIASIS
     Dosage: 0.128 MG, 1/WEEK, SUBCUTANEOUS
     Route: 058
     Dates: start: 20051207, end: 20060213

REACTIONS (1)
  - HEPATITIS TOXIC [None]
